FAERS Safety Report 4325386-8 (Version None)
Quarter: 2004Q1

REPORT INFORMATION
  Report Type: 
  Country: None (occurrence: None)
  Receive Date: 20040324
  Receipt Date: 20040312
  Transmission Date: 20041129
  Serious: Yes (Hospitalization)
  Sender: FDA-Public Use
  Company Number: US-JNJFOC-20040303485

PATIENT
  Age: 51 Year
  Sex: Female
  Weight: 133.8111 kg

DRUGS (10)
  1. INFLIXIMAB (INFLIXIMAB, RECOMBINANT) LYOPHLIZED POWDER` [Suspect]
     Indication: RHEUMATOID ARTHRITIS
     Dosage: INTRAVENOUS
     Route: 042
     Dates: start: 20010502, end: 20021212
  2. ENBREL [Concomitant]
  3. CALCIUM (CALCIUM) [Concomitant]
  4. INSULIN [Concomitant]
  5. SYNTHROID [Concomitant]
  6. DARVOCET [Concomitant]
  7. FOLIC ACID [Concomitant]
  8. ISOPTIN [Concomitant]
  9. URSODIOL (URSODEOXYCHOLIC ACID) [Concomitant]
  10. ENALAPRIL MALEATE [Concomitant]

REACTIONS (1)
  - GASTRIC BYPASS [None]
